FAERS Safety Report 14762686 (Version 2)
Quarter: 2018Q2

REPORT INFORMATION
  Report Type: Spontaneous
  Country: US (occurrence: US)
  Receive Date: 20180416
  Receipt Date: 20180511
  Transmission Date: 20180711
  Serious: Yes (Other)
  Sender: FDA-Public Use
  Company Number: US-PFIZER INC-2018153161

PATIENT
  Age: 70 Year
  Sex: Female
  Weight: 45.35 kg

DRUGS (2)
  1. SYSTANE (HYPROMELLOSE 2910 (4000 MPA.S)) [Concomitant]
     Active Substance: HYPROMELLOSE 2910 (4000 MPA.S)
     Indication: DRY EYE
     Dosage: 2 GTT, 1X/DAY, (ONE DROP, EACH EYE)
     Route: 047
  2. XELJANZ [Suspect]
     Active Substance: TOFACITINIB CITRATE
     Indication: RHEUMATOID ARTHRITIS
     Dosage: 5 MG, 2X/DAY
     Route: 048
     Dates: start: 20171115, end: 20180215

REACTIONS (4)
  - Fatigue [Unknown]
  - Decreased appetite [Unknown]
  - Breast cancer [Unknown]
  - Nausea [Unknown]

NARRATIVE: CASE EVENT DATE: 20171128
